FAERS Safety Report 24294058 (Version 1)
Quarter: 2024Q3

REPORT INFORMATION
  Report Type: Spontaneous
  Country: US (occurrence: US)
  Receive Date: 20240906
  Receipt Date: 20240906
  Transmission Date: 20241016
  Serious: No
  Sender: DOMPE FARMACEUTICI
  Company Number: US-FARMAPROD-202404-1182

PATIENT
  Age: 76 Year
  Sex: Female

DRUGS (7)
  1. OXERVATE [Suspect]
     Active Substance: CENEGERMIN-BKBJ
     Indication: Neurotrophic keratopathy
     Route: 047
     Dates: start: 20240327
  2. OXERVATE [Suspect]
     Active Substance: CENEGERMIN-BKBJ
  3. OXERVATE [Suspect]
     Active Substance: CENEGERMIN-BKBJ
  4. TYRVAYA [Concomitant]
     Active Substance: VARENICLINE TARTRATE
     Dosage: 0.03/SPRAY
  5. XIIDRA [Concomitant]
     Active Substance: LIFITEGRAST
     Dosage: DROPERETTE
  6. VITAMINS [Concomitant]
     Active Substance: VITAMINS
  7. MIEBO [Concomitant]
     Active Substance: PERFLUOROHEXYLOCTANE

REACTIONS (5)
  - Eye pain [Not Recovered/Not Resolved]
  - Eyelid pain [Not Recovered/Not Resolved]
  - Dry eye [Unknown]
  - Eye irritation [Unknown]
  - Vision blurred [Unknown]

NARRATIVE: CASE EVENT DATE: 20240327
